FAERS Safety Report 6832772-0 (Version None)
Quarter: 2010Q3

REPORT INFORMATION
  Report Type: 
  Country: None (occurrence: None)
  Receive Date: 20100712
  Receipt Date: 20070320
  Transmission Date: 20110219
  Serious: No
  Sender: FDA-Public Use
  Company Number: US-PFIZER INC-2007023852

PATIENT
  Sex: Female
  Weight: 53.52 kg

DRUGS (10)
  1. CHANTIX [Suspect]
     Indication: SMOKING CESSATION THERAPY
     Dates: start: 20070227
  2. MAGNESIUM OXIDE [Concomitant]
  3. METOPROLOL [Concomitant]
  4. OMEPRAZOLE [Concomitant]
  5. AMLODIPINE [Concomitant]
  6. PREDNISONE [Concomitant]
  7. ACETYLSALICYLIC ACID [Concomitant]
  8. PROGRAF [Concomitant]
  9. TEMAZEPAM [Concomitant]
  10. FOSAMAX [Concomitant]

REACTIONS (2)
  - FATIGUE [None]
  - NAUSEA [None]
